FAERS Safety Report 10625478 (Version 1)
Quarter: 2014Q4

REPORT INFORMATION
  Report Type: Spontaneous
  Country: US (occurrence: None)
  Receive Date: 20141202
  Receipt Date: 20141202
  Transmission Date: 20150529
  Serious: No
  Sender: FDA-Public Use
  Company Number: 2014-00101

PATIENT
  Age: 65 Year
  Sex: Female

DRUGS (5)
  1. C-PAP MACHINE [Concomitant]
     Active Substance: DEVICE
  2. WELLBUTRIN [Concomitant]
     Active Substance: BUPROPION HYDROCHLORIDE
  3. INSULIN PUMP [Concomitant]
     Active Substance: INSULIN NOS
  4. ZICAM NOS [Suspect]
     Active Substance: ACETAMINOPHEN\CHLORPHENIRAMINE MALEATE\DEXTROMETHORPHAN HYDROBROMIDE\PHENYLEPHRINE HYDROCHLORIDE OR ACETAMINOPHEN\DEXTROMETHORPHAN HYDROBROMIDE\DOXYLAMINE SUCCINATE\PHENYLEPHRINE HYDROCHLORIDE
     Indication: SINUS DISORDER
     Route: 045
     Dates: start: 201305, end: 201404
  5. VENLAFAXINE [Concomitant]
     Active Substance: VENLAFAXINE HYDROCHLORIDE

REACTIONS (4)
  - Anosmia [None]
  - Ageusia [None]
  - Weight increased [None]
  - Dyspnoea [None]

NARRATIVE: CASE EVENT DATE: 201403
